FAERS Safety Report 4364789-2 (Version None)
Quarter: 2004Q2

REPORT INFORMATION
  Report Type: 
  Country: None (occurrence: None)
  Receive Date: 20040526
  Receipt Date: 20030326
  Transmission Date: 20050107
  Serious: No
  Sender: FDA-Public Use
  Company Number: US-GLAXOSMITHKLINE-A0401976A

PATIENT
  Age: 52 Year
  Sex: Female
  Weight: 64.5 kg

DRUGS (3)
  1. LOTRONEX [Suspect]
     Indication: ILL-DEFINED DISORDER
     Route: 048
     Dates: start: 20000606
  2. PREMARIN [Concomitant]
  3. FLAGYL [Concomitant]

REACTIONS (3)
  - ABDOMINAL PAIN [None]
  - CONSTIPATION [None]
  - DIVERTICULITIS [None]
